FAERS Safety Report 12688800 (Version 1)
Quarter: 2016Q3

REPORT INFORMATION
  Report Type: Spontaneous
  Country: JP (occurrence: JP)
  Receive Date: 20160825
  Receipt Date: 20160825
  Transmission Date: 20161109
  Serious: Yes (Other)
  Sender: FDA-Public Use
  Company Number: JP-ABBVIE-16P-087-1635987-00

PATIENT
  Sex: Female
  Weight: 50.05 kg

DRUGS (1)
  1. LEVOBUPIVACAINE HYDROCHLORIDE (POPSCAINE) [Suspect]
     Active Substance: LEVOBUPIVACAINE HYDROCHLORIDE
     Indication: NEUROMUSCULAR BLOCKING THERAPY
     Dosage: POPSCAINE 0.25% INJECTION, 25ML X 2 SINGLE INJECTION
     Route: 050
     Dates: start: 20160427, end: 20160427

REACTIONS (3)
  - Muscle twitching [None]
  - Anaesthetic complication [Recovering/Resolving]
  - Hyporesponsive to stimuli [None]
